FAERS Safety Report 7402377-1 (Version None)
Quarter: 2011Q1

REPORT INFORMATION
  Report Type: 
  Country: None (occurrence: None)
  Receive Date: 20110330
  Receipt Date: 20110322
  Transmission Date: 20110831
  Serious: Yes (Life-Threatening, Other)
  Sender: FDA-Public Use
  Company Number: 2010EU000435

PATIENT
  Age: 41 Year
  Sex: Female

DRUGS (5)
  1. COUMADIN [Concomitant]
  2. CELLCEPT [Suspect]
  3. TACROLIMUS [Suspect]
     Indication: LIVER TRANSPLANT
     Dates: start: 20100101
  4. PROGRAF [Suspect]
     Indication: LIVER TRANSPLANT
     Dosage: 4 MG, TID, ORAL
     Route: 048
  5. KARDEGIC (ACETYLSALICYLATE LYSINE, ACETYLSALICYLIC ACID) [Concomitant]

REACTIONS (5)
  - PLATELET COUNT INCREASED [None]
  - DIPLOPIA [None]
  - HYPOTHYROIDISM [None]
  - CEREBROVASCULAR ACCIDENT [None]
  - PARAESTHESIA [None]
